FAERS Safety Report 19173544 (Version 1)
Quarter: 2021Q2

REPORT INFORMATION
  Report Type: Spontaneous
  Country: US (occurrence: US)
  Receive Date: 20210422
  Receipt Date: 20210422
  Transmission Date: 20210717
  Serious: Yes (Other)
  Sender: FDA-Public Use
  Company Number: None

PATIENT
  Age: 69 Year
  Sex: Male
  Weight: 96 kg

DRUGS (1)
  1. CASIRIVIMAB (1.2 G) AND IMDEVIMAB (1.2 G) [Suspect]
     Active Substance: CASIRIVIMAB\IMDEVIMAB
     Indication: COVID-19
     Dosage: ?          OTHER FREQUENCY:ONCE;?
     Route: 042

REACTIONS (4)
  - Infusion related reaction [None]
  - Hypoxia [None]
  - Oxygen saturation decreased [None]
  - COVID-19 [None]

NARRATIVE: CASE EVENT DATE: 20210422
